FAERS Safety Report 8429501-6 (Version None)
Quarter: 2012Q2

REPORT INFORMATION
  Report Type: 
  Country: None (occurrence: None)
  Receive Date: 20120604
  Receipt Date: 20120525
  Transmission Date: 20120825
  Serious: Yes (Other)
  Sender: FDA-Public Use
  Company Number: AUR-APL-2012-02309

PATIENT
  Age: 18 Year
  Sex: Female

DRUGS (1)
  1. TOPIRAMATE [Suspect]
     Indication: HEADACHE
     Dosage: 1000 MG (50 MG, 2 IN 1 D),

REACTIONS (9)
  - REFRACTION DISORDER [None]
  - CHOROIDAL EFFUSION [None]
  - HEADACHE [None]
  - SCLERITIS [None]
  - VISUAL ACUITY REDUCED [None]
  - ANGLE CLOSURE GLAUCOMA [None]
  - VISION BLURRED [None]
  - TOXICITY TO VARIOUS AGENTS [None]
  - INTRAOCULAR PRESSURE INCREASED [None]
